FAERS Safety Report 16332572 (Version 2)
Quarter: 2019Q2

REPORT INFORMATION
  Report Type: Spontaneous
  Country: US (occurrence: US)
  Receive Date: 20190520
  Receipt Date: 20190530
  Transmission Date: 20190711
  Serious: Yes (Life-Threatening, Hospitalization, Other)
  Sender: FDA-Public Use
  Company Number: US-SA-2019SA135977

PATIENT
  Age: 50 Year
  Sex: Male

DRUGS (3)
  1. LIDOCAINE HYDROCHLORIDE. [Suspect]
     Active Substance: LIDOCAINE HYDROCHLORIDE
     Indication: TACHYARRHYTHMIA
  2. DILTIAZEM. [Suspect]
     Active Substance: DILTIAZEM
     Indication: TACHYARRHYTHMIA
  3. AMIODARONE [Suspect]
     Active Substance: AMIODARONE
     Indication: TACHYARRHYTHMIA

REACTIONS (5)
  - Ventricular extrasystoles [Unknown]
  - Drug ineffective [Unknown]
  - Treatment failure [Unknown]
  - Hyperkalaemia [Unknown]
  - Sinus tachycardia [Unknown]
